FAERS Safety Report 8223932-5 (Version None)
Quarter: 2012Q1

REPORT INFORMATION
  Report Type: 
  Country: None (occurrence: None)
  Receive Date: 20120321
  Receipt Date: 20120315
  Transmission Date: 20120608
  Serious: Yes (Other)
  Sender: FDA-Public Use
  Company Number: JP-PFIZER INC-2012033760

PATIENT
  Age: 71 Year
  Sex: Male
  Weight: 50 kg

DRUGS (2)
  1. MUCOSTA [Concomitant]
     Indication: GASTROINTESTINAL DISORDER
     Dosage: UNK
     Route: 048
     Dates: start: 20120124, end: 20120202
  2. CELECOXIB [Suspect]
     Indication: PAIN
     Dosage: 200 MG, 2X/DAY
     Route: 048
     Dates: start: 20120124, end: 20120201

REACTIONS (3)
  - DRUG HYPERSENSITIVITY [None]
  - SHOCK [None]
  - PYREXIA [None]
